FAERS Safety Report 4351316-9 (Version None)
Quarter: 2004Q2

REPORT INFORMATION
  Report Type: 
  Country: None (occurrence: None)
  Receive Date: 20040428
  Receipt Date: 20040408
  Transmission Date: 20050107
  Serious: Yes (Hospitalization, Other)
  Sender: FDA-Public Use
  Company Number: USA040361423

PATIENT
  Age: 72 Year
  Sex: Female
  Weight: 75 kg

DRUGS (1)
  1. FORTEO [Suspect]
     Indication: OSTEOPENIA
     Dosage: 20 UG/1 DAY
     Dates: start: 20030408

REACTIONS (17)
  - ATRIAL FIBRILLATION [None]
  - BLOOD MAGNESIUM DECREASED [None]
  - BLOOD POTASSIUM DECREASED [None]
  - CELLULITIS [None]
  - CLOSTRIDIAL INFECTION [None]
  - DERMATITIS [None]
  - DIARRHOEA [None]
  - INJECTION SITE ERYTHEMA [None]
  - INJECTION SITE HAEMORRHAGE [None]
  - INJECTION SITE NODULE [None]
  - INJECTION SITE URTICARIA [None]
  - LYMPHOEDEMA [None]
  - OEDEMA PERIPHERAL [None]
  - OSTEOPOROSIS [None]
  - PYREXIA [None]
  - VENOUS STASIS [None]
  - VOMITING [None]
